FAERS Safety Report 8201557-5 (Version None)
Quarter: 2012Q1

REPORT INFORMATION
  Report Type: 
  Country: None (occurrence: None)
  Receive Date: 20120312
  Receipt Date: 20111220
  Transmission Date: 20120608
  Serious: Yes (Other)
  Sender: FDA-Public Use
  Company Number: JP-VALEANT-2012VX001100

PATIENT
  Age: 74 Year
  Sex: Male

DRUGS (3)
  1. CISPLATIN [Suspect]
     Route: 065
     Dates: start: 20100701
  2. FLUOROURACIL [Suspect]
     Route: 065
     Dates: start: 20100701
  3. TAXOTERE [Suspect]
     Route: 065
     Dates: start: 20100701

REACTIONS (8)
  - HYPONATRAEMIA [None]
  - GASTROINTESTINAL INFLAMMATION [None]
  - ALTERED STATE OF CONSCIOUSNESS [None]
  - DIARRHOEA [None]
  - LEUKOPENIA [None]
  - NEUTROPENIA [None]
  - DECREASED APPETITE [None]
  - HYPOKALAEMIA [None]
